FAERS Safety Report 9114200 (Version 1)
Quarter: 2013Q1

REPORT INFORMATION
  Report Type: Spontaneous
  Country: US (occurrence: US)
  Receive Date: 20130208
  Receipt Date: 20130208
  Transmission Date: 20140127
  Serious: Yes (Death)
  Sender: FDA-Public Use
  Company Number: CHPA2013US002537

PATIENT
  Age: 31 Year
  Sex: Male

DRUGS (1)
  1. DIPHENHYDRAMINE [Suspect]
     Dosage: UNK, UNK
     Route: 048

REACTIONS (12)
  - Completed suicide [Fatal]
  - Toxicity to various agents [Fatal]
  - Convulsion [Fatal]
  - Overdose [Fatal]
  - Bradycardia [Fatal]
  - Cardiac arrest [Fatal]
  - Hypotension [Fatal]
  - Muscle twitching [Fatal]
  - Oxygen saturation abnormal [Fatal]
  - Acute respiratory distress syndrome [Fatal]
  - Pulmonary congestion [Fatal]
  - Lung disorder [Fatal]
